FAERS Safety Report 8537401-6 (Version None)
Quarter: 2012Q3

REPORT INFORMATION
  Report Type: 
  Country: None (occurrence: None)
  Receive Date: 20120725
  Receipt Date: 20120503
  Transmission Date: 20120928
  Serious: Yes (Hospitalization)
  Sender: FDA-Public Use
  Company Number: US-MYLANLABS-2012S1009360

PATIENT
  Sex: Female

DRUGS (1)
  1. LOSARTAN POTASSIUM [Suspect]

REACTIONS (1)
  - DRUG INEFFECTIVE [None]
